FAERS Safety Report 7030450-9 (Version None)
Quarter: 2010Q4

REPORT INFORMATION
  Report Type: 
  Country: None (occurrence: None)
  Receive Date: 20101006
  Receipt Date: 20100929
  Transmission Date: 20110411
  Serious: Yes (Death, Hospitalization)
  Sender: FDA-Public Use
  Company Number: PH-BAXTER-2010BH024718

PATIENT
  Age: 78 Year
  Sex: Female

DRUGS (2)
  1. DIANEAL [Suspect]
     Indication: PERITONEAL DIALYSIS
     Route: 033
     Dates: start: 20090912
  2. DIANEAL [Suspect]
     Route: 033
     Dates: start: 20090912

REACTIONS (1)
  - CARDIO-RESPIRATORY ARREST [None]
